FAERS Safety Report 5932913-3 (Version None)
Quarter: 2008Q4

REPORT INFORMATION
  Report Type: 
  Country: None (occurrence: None)
  Receive Date: 20081023
  Receipt Date: 20081009
  Transmission Date: 20090506
  Serious: Yes (Other)
  Sender: FDA-Public Use
  Company Number: 2008BI027352

PATIENT
  Age: 38 Year
  Sex: Female

DRUGS (1)
  1. TYSABRI [Suspect]
     Indication: MULTIPLE SCLEROSIS
     Dosage: 300 MG; QM; IV
     Route: 042
     Dates: start: 20070607, end: 20081007

REACTIONS (4)
  - B-LYMPHOCYTE COUNT INCREASED [None]
  - CD4 LYMPHOCYTES INCREASED [None]
  - CLOSTRIDIUM DIFFICILE COLITIS [None]
  - URINARY TRACT INFECTION [None]
